FAERS Safety Report 24901133 (Version 2)
Quarter: 2025Q1

REPORT INFORMATION
  Report Type: Spontaneous
  Country: HU (occurrence: HU)
  Receive Date: 20250129
  Receipt Date: 20250210
  Transmission Date: 20250409
  Serious: Yes (Hospitalization, Other)
  Sender: MYLAN
  Company Number: HU-RICHTER-2025-GR-000368

PATIENT
  Age: 32 Year
  Sex: Female

DRUGS (16)
  1. SUNITINIB [Suspect]
     Active Substance: SUNITINIB
     Indication: Bladder cancer
     Route: 065
     Dates: start: 2022, end: 202301
  2. SUNITINIB [Suspect]
     Active Substance: SUNITINIB
     Indication: Recurrent cancer
  3. SUNITINIB [Suspect]
     Active Substance: SUNITINIB
     Indication: Urachal abnormality
  4. SUNITINIB [Suspect]
     Active Substance: SUNITINIB
     Indication: Neoplasm
  5. FLUOROURACIL SODIUM [Suspect]
     Active Substance: FLUOROURACIL SODIUM
     Indication: Recurrent cancer
     Route: 065
     Dates: start: 2022
  6. FLUOROURACIL SODIUM [Suspect]
     Active Substance: FLUOROURACIL SODIUM
     Indication: Urachal abnormality
  7. FLUOROURACIL SODIUM [Suspect]
     Active Substance: FLUOROURACIL SODIUM
     Indication: Neoplasm
  8. CISPLATIN [Suspect]
     Active Substance: CISPLATIN
     Indication: Recurrent cancer
     Route: 065
  9. CISPLATIN [Suspect]
     Active Substance: CISPLATIN
     Indication: Urachal abnormality
  10. CISPLATIN [Suspect]
     Active Substance: CISPLATIN
     Indication: Neoplasm
  11. NIVOLUMAB [Suspect]
     Active Substance: NIVOLUMAB
     Indication: Recurrent cancer
     Route: 065
     Dates: start: 2023
  12. NIVOLUMAB [Suspect]
     Active Substance: NIVOLUMAB
     Indication: Urachal abnormality
  13. NIVOLUMAB [Suspect]
     Active Substance: NIVOLUMAB
     Indication: Neoplasm
  14. DOCETAXEL [Suspect]
     Active Substance: DOCETAXEL
     Indication: Recurrent cancer
     Route: 065
  15. DOCETAXEL [Suspect]
     Active Substance: DOCETAXEL
     Indication: Urachal abnormality
  16. DOCETAXEL [Suspect]
     Active Substance: DOCETAXEL
     Indication: Neoplasm

REACTIONS (3)
  - Drug ineffective [Unknown]
  - Malignant neoplasm progression [Unknown]
  - Product use in unapproved indication [Recovered/Resolved]

NARRATIVE: CASE EVENT DATE: 20220101
